FAERS Safety Report 10132583 (Version 2)
Quarter: 2014Q2

REPORT INFORMATION
  Report Type: Spontaneous
  Country: US (occurrence: US)
  Receive Date: 20140428
  Receipt Date: 20140513
  Transmission Date: 20141212
  Serious: Yes (Other)
  Sender: FDA-Public Use
  Company Number: US-SA-2014SA052233

PATIENT
  Age: 65 Year
  Sex: Male

DRUGS (22)
  1. LANTUS SOLOSTAR [Suspect]
     Indication: TYPE 2 DIABETES MELLITUS
     Dosage: DOSE:12 UNIT(S)
     Route: 065
     Dates: start: 20130512
  2. JANUVIA [Concomitant]
  3. PREDNISONE [Concomitant]
  4. NOVOLOG [Concomitant]
  5. SOLOSTAR [Concomitant]
     Dates: start: 2013
  6. PROGRAF [Concomitant]
  7. MYCOPHENOLATE MOFETIL [Concomitant]
     Dosage: DOSE: 1250MG IN THE MORNING AND 1000 MG IN THE EVENING
  8. MULTIVITAMINS [Concomitant]
  9. CALCIUM CITRATE [Concomitant]
     Dosage: DOSE: 315-250 MG
  10. KLOR-CON [Concomitant]
     Dosage: DOSE: 20 MEQ
  11. NEXIUM [Concomitant]
  12. ASPIRIN [Concomitant]
  13. FERROUS SULFATE [Concomitant]
  14. ALLOPURINOL [Concomitant]
  15. DEMADEX [Concomitant]
     Dosage: DOSE: 20MG/10MG ALTERNATE DAY
  16. MAGNESIUM OXIDE [Concomitant]
  17. COZAAR [Concomitant]
  18. PRAVACHOL [Concomitant]
  19. SINGULAIR [Concomitant]
  20. DULERA [Concomitant]
     Dosage: FORM: INHALER?DOSE: 2 PUFFS TWICE DAILY
  21. COLACE [Concomitant]
  22. MIRALAX [Concomitant]

REACTIONS (2)
  - Heart transplant [Unknown]
  - Underdose [Unknown]
